FAERS Safety Report 24664608 (Version 1)
Quarter: 2024Q4

REPORT INFORMATION
  Report Type: Spontaneous
  Country: US (occurrence: None)
  Receive Date: 20241125
  Receipt Date: 20241125
  Transmission Date: 20250114
  Serious: No
  Sender: Public
  Company Number: None

PATIENT
  Age: 72 Year
  Sex: Male
  Weight: 102.15 kg

DRUGS (2)
  1. GAMMAKED [Suspect]
     Active Substance: HUMAN IMMUNOGLOBULIN G
     Indication: Chronic inflammatory demyelinating polyradiculoneuropathy
     Dosage: 30 G GRAM(S)   DAILY X5/MONTH INTRAVENOUS DRIP ?
     Route: 041
  2. Gammaked 10 % [Concomitant]
     Dates: start: 20241111, end: 20241115

REACTIONS (3)
  - Rash [None]
  - Rash [None]
  - Rash [None]

NARRATIVE: CASE EVENT DATE: 20241118
